FAERS Safety Report 4330662-9 (Version None)
Quarter: 2004Q2

REPORT INFORMATION
  Report Type: 
  Country: None (occurrence: None)
  Receive Date: 20040402
  Receipt Date: 20040322
  Transmission Date: 20050107
  Serious: Yes (Other)
  Sender: FDA-Public Use
  Company Number: GB-GLAXOSMITHKLINE-B0327533A

PATIENT

DRUGS (2)
  1. SEROXAT [Suspect]
  2. ALCOHOL [Concomitant]

REACTIONS (2)
  - AGGRESSION [None]
  - MENTAL DISORDER [None]
